FAERS Safety Report 14920663 (Version 1)
Quarter: 2018Q2

REPORT INFORMATION
  Report Type: Spontaneous
  Country: US (occurrence: US)
  Receive Date: 20180521
  Receipt Date: 20180521
  Transmission Date: 20180711
  Serious: Yes (Hospitalization, Other)
  Sender: FDA-Public Use
  Company Number: US-PFIZER INC-2018203360

PATIENT
  Age: 75 Year
  Sex: Female

DRUGS (23)
  1. PROGESTERONE. [Suspect]
     Active Substance: PROGESTERONE
     Dosage: UNK
     Dates: start: 2015
  2. POTASSIUM [Concomitant]
     Active Substance: POTASSIUM
     Dosage: UNK UNK, 2X/DAY (2 IN 1 D)
     Route: 048
     Dates: start: 2017
  3. FOLIC ACID. [Concomitant]
     Active Substance: FOLIC ACID
     Dosage: 1 MG, UNK (1 MG, 6 IN 1 WK)
     Route: 048
  4. BUMEX [Concomitant]
     Active Substance: BUMETANIDE
     Indication: DIURETIC THERAPY
     Dosage: 2 MG, 1X/DAY (2 MG,1 IN 1 D)
     Route: 048
  5. HUMIRA [Interacting]
     Active Substance: ADALIMUMAB
     Indication: RHEUMATOID ARTHRITIS
     Dosage: UNK
     Route: 058
     Dates: start: 2015, end: 2017
  6. CARDIZEM [Concomitant]
     Active Substance: DILTIAZEM HYDROCHLORIDE
     Indication: CARDIAC DISORDER
     Dosage: 240 MG, 1X/DAY (TAKING FOR AT LEAST 6 MONTHS (240 MG,1 IN 1 D))
     Route: 048
  7. CARDIZEM [Concomitant]
     Active Substance: DILTIAZEM HYDROCHLORIDE
     Indication: BLOOD PRESSURE ABNORMAL
  8. HYDROCODONE BITARTRATE AND ACETAMINOPHEN [Concomitant]
     Active Substance: ACETAMINOPHEN\HYDROCODONE BITARTRATE
     Indication: PAIN
     Dosage: 1 DF, UNK (HYDROCODONE BITARTRATE:10 MG/ACETAMINOPHEN:325 MG ONE TABLET BY MOUTH TWO TO THREE TIMES)
     Route: 048
     Dates: start: 2017
  9. METHOTREXATE. [Suspect]
     Active Substance: METHOTREXATE
     Dosage: UNK, WEEKLY (1 IN 1 WK)
     Route: 048
  10. REMERON [Suspect]
     Active Substance: MIRTAZAPINE
     Indication: SLEEP APNOEA SYNDROME
     Dosage: 15 MG, 1X/DAY (BEFORE BED (15 MG, 1 IN 1 D))
     Route: 048
  11. PANTOPRAZOLE [Concomitant]
     Active Substance: PANTOPRAZOLE
     Indication: GASTRIC DISORDER
     Dosage: 40 MG, 1X/DAY (40 MG,1 IN 1 D)
     Route: 048
     Dates: start: 2017
  12. ALDACTONE [Concomitant]
     Active Substance: SPIRONOLACTONE
     Indication: DIURETIC THERAPY
     Dosage: 2 DF, 1X/DAY (2 DOSAGE FORMS, 1 IN 1 D)
     Route: 048
     Dates: start: 201710
  13. TRAMADOL. [Concomitant]
     Active Substance: TRAMADOL
     Indication: PAIN
     Dosage: UNK, AS NEEDED (AS REQUIRED)
  14. ATORVASTATIN [Concomitant]
     Active Substance: ATORVASTATIN
     Indication: BLOOD CHOLESTEROL INCREASED
     Dosage: 20 MG, 1X/DAY (AT BED TIME AND TAKING FOR ATLEAST 6 MONTHS (20 MG, 1 IN 1 D))
     Route: 048
  15. COZAAR [Concomitant]
     Active Substance: LOSARTAN POTASSIUM
     Indication: CARDIAC FAILURE
     Dosage: 25 MG, 1X/DAY (25 MG,1 IN 1 D)
     Route: 048
     Dates: start: 2017
  16. GABAPENTIN. [Concomitant]
     Active Substance: GABAPENTIN
     Indication: FIBROMYALGIA
     Dosage: 400 MG, 3X/DAY (400 MG,3 IN 1 D)
     Dates: end: 2017
  17. CYMBALTA [Interacting]
     Active Substance: DULOXETINE HYDROCHLORIDE
     Dosage: UNK (2 WEEKS)
     Dates: start: 2016, end: 2016
  18. LEXAPRO [Suspect]
     Active Substance: ESCITALOPRAM OXALATE
     Indication: DEPRESSION
     Dosage: 20 MG, 1X/DAY (20 MG, 1 IN 1 D)
     Route: 048
     Dates: start: 2017
  19. PLAQUENIL [Suspect]
     Active Substance: HYDROXYCHLOROQUINE SULFATE
     Dosage: UNK
  20. XELJANZ [Suspect]
     Active Substance: TOFACITINIB CITRATE
     Indication: RHEUMATOID ARTHRITIS
     Dosage: 5 MG, 2X/DAY (5 MG, 2 IN 1 D)
     Route: 048
     Dates: start: 201702
  21. METHOTREXATE. [Suspect]
     Active Substance: METHOTREXATE
     Indication: RHEUMATOID ARTHRITIS
     Dosage: 9 DF, WEEKLY (1 IN1 WK)(ON SATURDAY)
     Route: 048
     Dates: start: 2015
  22. CARVEDILOL. [Concomitant]
     Active Substance: CARVEDILOL
     Indication: CARDIAC FAILURE
     Dosage: 6.25 MG, 2X/DAY (6.25 MG, 2 IN 1 D)
     Route: 048
     Dates: start: 2017
  23. POTASSIUM [Concomitant]
     Active Substance: POTASSIUM
     Dosage: 10 MEQ, 1X/DAY (10 MILLIEQUIVALENTS,1 IN 1 D)
     Route: 048

REACTIONS (5)
  - Cardiac failure [Recovered/Resolved]
  - Weight fluctuation [Unknown]
  - Drug interaction [Unknown]
  - Dyspnoea [Unknown]
  - Pulmonary embolism [Unknown]

NARRATIVE: CASE EVENT DATE: 201612
